FAERS Safety Report 23658006 (Version 4)
Quarter: 2024Q2

REPORT INFORMATION
  Report Type: Spontaneous
  Country: AR (occurrence: AR)
  Receive Date: 20240321
  Receipt Date: 20240429
  Transmission Date: 20240716
  Serious: No
  Sender: FDA-Public Use
  Company Number: AR-PFIZER INC-PV202400028075

PATIENT
  Age: 14 Year
  Sex: Male

DRUGS (1)
  1. GENOTROPIN [Suspect]
     Active Substance: SOMATROPIN
     Indication: Short stature
     Dosage: 0.6 MG TO 1 MG 6 TIMES PER WEEK
     Dates: start: 20150213

REACTIONS (4)
  - Device mechanical issue [Not Recovered/Not Resolved]
  - Device information output issue [Not Recovered/Not Resolved]
  - Poor quality device used [Not Recovered/Not Resolved]
  - Expired device used [Unknown]

NARRATIVE: CASE EVENT DATE: 20240228
